FAERS Safety Report 5548416-4 (Version None)
Quarter: 2007Q4

REPORT INFORMATION
  Report Type: 
  Country: None (occurrence: None)
  Receive Date: 20071211
  Receipt Date: 20070405
  Transmission Date: 20080405
  Serious: No
  Sender: FDA-Public Use
  Company Number: US-AMGEN-KDL218496

PATIENT
  Sex: Female

DRUGS (2)
  1. ENBREL [Suspect]
     Indication: RHEUMATOID ARTHRITIS
     Route: 058
     Dates: start: 20070108
  2. SULFASALAZINE [Concomitant]
     Route: 048
     Dates: start: 20060101

REACTIONS (3)
  - DYSPNOEA [None]
  - PALPITATIONS [None]
  - WEIGHT INCREASED [None]
